FAERS Safety Report 8051424-5 (Version None)
Quarter: 2012Q1

REPORT INFORMATION
  Report Type: 
  Country: None (occurrence: None)
  Receive Date: 20120117
  Receipt Date: 20120112
  Transmission Date: 20120608
  Serious: Yes (Other)
  Sender: FDA-Public Use
  Company Number: BR-ROCHE-1030183

PATIENT
  Sex: Female
  Weight: 91 kg

DRUGS (3)
  1. UNSPECIFIED MEDICATION [Concomitant]
  2. MABTHERA [Suspect]
     Indication: RHEUMATOID ARTHRITIS
     Route: 042
     Dates: start: 20100831
  3. CLONAZEPAM [Concomitant]

REACTIONS (9)
  - OEDEMA PERIPHERAL [None]
  - GAIT DISTURBANCE [None]
  - SKIN CANCER [None]
  - DRUG INEFFECTIVE [None]
  - DIZZINESS [None]
  - WEIGHT INCREASED [None]
  - SENSATION OF HEAVINESS [None]
  - JOINT SWELLING [None]
  - ULCER [None]
